FAERS Safety Report 7338729-8 (Version None)
Quarter: 2011Q1

REPORT INFORMATION
  Report Type: 
  Country: None (occurrence: None)
  Receive Date: 20110308
  Receipt Date: 20110302
  Transmission Date: 20110831
  Serious: Yes (Other)
  Sender: FDA-Public Use
  Company Number: B0703803A

PATIENT
  Sex: Male

DRUGS (3)
  1. LANDSEN [Concomitant]
     Route: 048
  2. LAMICTAL [Suspect]
     Indication: EPILEPSY
     Route: 048
     Dates: start: 20110218, end: 20110301
  3. PRORENAL [Concomitant]
     Route: 048

REACTIONS (2)
  - EYE DISORDER [None]
  - PARAESTHESIA ORAL [None]
